FAERS Safety Report 22159219 (Version 1)
Quarter: 2023Q1

REPORT INFORMATION
  Report Type: Report from Study
  Country: ZA (occurrence: ZA)
  Receive Date: 20230331
  Receipt Date: 20230331
  Transmission Date: 20230418
  Serious: Yes (Death, Other)
  Sender: FDA-Public Use
  Company Number: ZA-AstraZeneca-2023A074546

PATIENT
  Age: 137 Day
  Sex: Female
  Weight: 7 kg

DRUGS (1)
  1. SYNAGIS [Suspect]
     Active Substance: PALIVIZUMAB
     Indication: Antiviral prophylaxis
     Dosage: MONTHLY
     Route: 030
     Dates: start: 20230128

REACTIONS (1)
  - Death [Fatal]

NARRATIVE: CASE EVENT DATE: 20230323
